FAERS Safety Report 7994387-0 (Version None)
Quarter: 2011Q4

REPORT INFORMATION
  Report Type: 
  Country: None (occurrence: None)
  Receive Date: 20111220
  Receipt Date: 20111208
  Transmission Date: 20120403
  Serious: Yes (Other)
  Sender: FDA-Public Use
  Company Number: US-JNJFOC-20111204448

PATIENT
  Age: 27 Year
  Sex: Female

DRUGS (2)
  1. ADALIMUMAB [Suspect]
     Indication: CROHN'S DISEASE
     Route: 065
  2. INFLIXIMAB, RECOMBINANT [Suspect]
     Indication: CROHN'S DISEASE
     Route: 042

REACTIONS (3)
  - ENCEPHALITIS BRAIN STEM [None]
  - OPTIC NEURITIS [None]
  - NEURITIS CRANIAL [None]
